FAERS Safety Report 5479173-8 (Version None)
Quarter: 2007Q4

REPORT INFORMATION
  Report Type: 
  Country: None (occurrence: None)
  Receive Date: 20071008
  Receipt Date: 20071001
  Transmission Date: 20080405
  Serious: Yes (Hospitalization)
  Sender: FDA-Public Use
  Company Number: US-ELI_LILLY_AND_COMPANY-US200709002701

PATIENT
  Age: 50 Year
  Sex: Female

DRUGS (2)
  1. ZYPREXA [Suspect]
     Indication: SCHIZOPHRENIA
     Dosage: 10 MG, EACH EVENING
     Route: 048
     Dates: start: 20070725
  2. HALDOL /SCH/ [Concomitant]
     Dosage: 7 MG, EACH EVENING
     Dates: end: 20070811

REACTIONS (5)
  - CONTUSION [None]
  - ERYTHEMA [None]
  - EXCORIATION [None]
  - FALL [None]
  - MYOCLONUS [None]
